FAERS Safety Report 6466880-3 (Version None)
Quarter: 2009Q4

REPORT INFORMATION
  Report Type: 
  Country: None (occurrence: None)
  Receive Date: 20091202
  Receipt Date: 20091119
  Transmission Date: 20100525
  Serious: Yes (Life-Threatening)
  Sender: FDA-Public Use
  Company Number: US-CELGENEUS-163-21880-09111652

PATIENT
  Sex: Male
  Weight: 103.7 kg

DRUGS (3)
  1. REVLIMID [Suspect]
     Route: 048
     Dates: start: 20080731, end: 20091014
  2. REVLIMID [Suspect]
     Route: 048
     Dates: start: 20091027
  3. DEXAMETHASONE TAB [Suspect]
     Indication: NON-HODGKIN'S LYMPHOMA
     Route: 048
     Dates: start: 20080802

REACTIONS (1)
  - NEUTROPENIA [None]
